FAERS Safety Report 8661802 (Version 6)
Quarter: 2012Q4

REPORT INFORMATION
  Report Type: 
  Country: JP (occurrence: JP)
  Receive Date: 20120712
  Receipt Date: 20120926
  Transmission Date: 20130627
  Serious: Yes (Life-Threatening, Other)
  Sender: FDA-Public Use
  Company Number: JP-JNJFOC-20120703473

PATIENT
  Age: 79 Year
  Sex: Male

DRUGS (4)
  1. FINIBAX [Suspect]
     Indication: PNEUMONIA ASPIRATION
     Dosage: 0.25 g three times daily totalling to 0.75 grams/day
     Route: 041
     Dates: start: 20120627, end: 20120702
  2. SOLU MEDROL [Concomitant]
     Indication: PNEUMONIA ASPIRATION
     Route: 041
     Dates: start: 20120627, end: 20120629
  3. PHYSIOSOL [Concomitant]
     Indication: FLUID REPLACEMENT
     Route: 041
     Dates: start: 20120628
  4. LACTEC-G [Concomitant]
     Indication: FLUID REPLACEMENT
     Route: 041
     Dates: start: 20120628

REACTIONS (4)
  - Renal impairment [Recovered/Resolved]
  - Pancreatic disorder [Unknown]
  - Enteritis [Unknown]
  - Platelet count decreased [Recovered/Resolved]
